FAERS Safety Report 11363985 (Version 1)
Quarter: 2015Q3

REPORT INFORMATION
  Report Type: Other
  Country: US (occurrence: US)
  Receive Date: 20150811
  Receipt Date: 20150811
  Transmission Date: 20151125
  Serious: No
  Sender: FDA-Public Use
  Company Number: US-LUPIN PHARMACEUTICALS INC.-E2B_00000783

PATIENT
  Age: 73 Year
  Sex: Male
  Weight: 95.34 kg

DRUGS (6)
  1. ASPIRIN. [Concomitant]
     Active Substance: ASPIRIN
     Indication: THROMBOSIS PROPHYLAXIS
  2. ATENOLOL. [Concomitant]
     Active Substance: ATENOLOL
     Indication: HYPERTENSION
  3. IBUPROFEN. [Concomitant]
     Active Substance: IBUPROFEN
     Indication: PAIN
     Route: 065
  4. BENICAR [Concomitant]
     Active Substance: OLMESARTAN MEDOXOMIL
     Indication: HYPERTENSION
  5. LEVOFLOXACIN TABLETS 500 MG [Suspect]
     Active Substance: LEVOFLOXACIN
     Indication: ACUTE SINUSITIS
     Dates: start: 20130305, end: 20130309
  6. LOZOL [Concomitant]
     Active Substance: INDAPAMIDE
     Indication: HYPERTENSION

REACTIONS (6)
  - Muscular weakness [Not Recovered/Not Resolved]
  - Extrasystoles [Recovered/Resolved]
  - Tachycardia [Recovered/Resolved]
  - Visual acuity reduced [Not Recovered/Not Resolved]
  - Myalgia [Not Recovered/Not Resolved]
  - Nausea [Not Recovered/Not Resolved]

NARRATIVE: CASE EVENT DATE: 201303
